FAERS Safety Report 5484449-4 (Version None)
Quarter: 2007Q4

REPORT INFORMATION
  Report Type: 
  Country: None (occurrence: None)
  Receive Date: 20071010
  Receipt Date: 20071003
  Transmission Date: 20080405
  Serious: Yes (Life-Threatening)
  Sender: FDA-Public Use
  Company Number: 2007SP017810

PATIENT
  Age: 77 Year
  Sex: Female
  Weight: 49.4421 kg

DRUGS (4)
  1. NOXAFIL [Suspect]
     Indication: SCEDOSPORIUM INFECTION
     Dosage: 400 MG; BID
     Dates: start: 20061201, end: 20070615
  2. MEGACE [Suspect]
     Indication: APPETITE DISORDER
     Dosage: 500 MG;QD; ;PO
     Route: 048
     Dates: start: 20070101, end: 20070601
  3. AVELOX [Concomitant]
  4. BIAXIN [Concomitant]

REACTIONS (1)
  - ADRENAL INSUFFICIENCY [None]
